FAERS Safety Report 7248562-3 (Version None)
Quarter: 2011Q1

REPORT INFORMATION
  Report Type: 
  Country: None (occurrence: None)
  Receive Date: 20110128
  Receipt Date: 20101120
  Transmission Date: 20110831
  Serious: Yes (Hospitalization, Other)
  Sender: FDA-Public Use
  Company Number: US-BAYER-2010-000089

PATIENT
  Age: 3 Month
  Sex: Male
  Weight: 4 kg

DRUGS (1)
  1. PHILLIPS' M-O LUBRICANT LAXATIVE MINT [Suspect]
     Indication: CONSTIPATION

REACTIONS (7)
  - TACHYPNOEA [None]
  - COUGH [None]
  - RESPIRATORY FAILURE [None]
  - PYREXIA [None]
  - MYCOBACTERIUM FORTUITUM INFECTION [None]
  - PNEUMONIA LIPOID [None]
  - HYPOXIA [None]
